FAERS Safety Report 21184826 (Version 1)
Quarter: 2022Q3

REPORT INFORMATION
  Report Type: Spontaneous
  Country: US (occurrence: None)
  Receive Date: 20220805
  Receipt Date: 20220805
  Transmission Date: 20221027
  Serious: Yes (Other)
  Sender: FDA-Public Use
  Company Number: None

PATIENT
  Age: 24 Year
  Sex: Female
  Weight: 112.5 kg

DRUGS (5)
  1. MAGNESIUM CITRATE [Suspect]
     Active Substance: MAGNESIUM CITRATE
     Indication: Constipation
     Dosage: OTHER QUANTITY : 1 BOTTLE;?FREQUENCY : DAILY;?
     Route: 048
     Dates: start: 20220723, end: 20220724
  2. BENADRYL [Concomitant]
     Active Substance: DIPHENHYDRAMINE HYDROCHLORIDE
  3. UNSPECIFIED INGREDIENT [Concomitant]
     Active Substance: UNSPECIFIED INGREDIENT
  4. VITAMINS [Concomitant]
     Active Substance: VITAMINS
  5. ALLERGY MEDICINE [Concomitant]
     Active Substance: DIPHENHYDRAMINE HYDROCHLORIDE

REACTIONS (7)
  - Throat tightness [None]
  - Trismus [None]
  - Dyspnoea [None]
  - Mood swings [None]
  - Dysphagia [None]
  - Head discomfort [None]
  - Mouth swelling [None]

NARRATIVE: CASE EVENT DATE: 20220723
